FAERS Safety Report 6181263-1 (Version None)
Quarter: 2009Q2

REPORT INFORMATION
  Report Type: 
  Country: None (occurrence: None)
  Receive Date: 20090506
  Receipt Date: 20090430
  Transmission Date: 20091009
  Serious: Yes (Death)
  Sender: FDA-Public Use
  Company Number: TW-ABBOTT-08P-153-0485544-00

PATIENT

DRUGS (3)
  1. DEPAKENE [Suspect]
     Indication: EPILEPSY
     Dates: start: 20061202
  2. TARGOCID [Suspect]
     Indication: STAPHYLOCOCCAL INFECTION
     Route: 042
     Dates: start: 20061215, end: 20061221
  3. TAZOCIN [Suspect]
     Indication: STAPHYLOCOCCAL INFECTION
     Dates: start: 20061215, end: 20061221

REACTIONS (3)
  - MULTI-ORGAN FAILURE [None]
  - SEPTIC SHOCK [None]
  - TOXIC EPIDERMAL NECROLYSIS [None]
